FAERS Safety Report 18436187 (Version 2)
Quarter: 2020Q4

REPORT INFORMATION
  Report Type: Spontaneous
  Country: US (occurrence: US)
  Receive Date: 20201028
  Receipt Date: 20201116
  Transmission Date: 20210114
  Serious: No
  Sender: FDA-Public Use
  Company Number: US-JNJFOC-20201040287

PATIENT
  Sex: Female

DRUGS (1)
  1. ZYRTEC-D [Suspect]
     Active Substance: CETIRIZINE HYDROCHLORIDE\PSEUDOEPHEDRINE HYDROCHLORIDE
     Indication: PRODUCT USED FOR UNKNOWN INDICATION
     Dosage: 2 ZYRTEC IN THE MORNING AND THEN TWO IN THE EVENING
     Route: 065

REACTIONS (4)
  - Feeling jittery [Recovered/Resolved]
  - Thinking abnormal [Recovered/Resolved]
  - Overdose [Unknown]
  - Disturbance in attention [Recovered/Resolved]
